FAERS Safety Report 23026732 (Version 1)
Quarter: 2023Q4

REPORT INFORMATION
  Report Type: Spontaneous
  Country: DK (occurrence: DK)
  Receive Date: 20231004
  Receipt Date: 20231004
  Transmission Date: 20240110
  Serious: Yes (Death)
  Sender: FDA-Public Use
  Company Number: None

PATIENT
  Age: 68 Year
  Sex: Male

DRUGS (2)
  1. CISPLATIN [Suspect]
     Active Substance: CISPLATIN
     Indication: Metastatic choriocarcinoma
     Dosage: DOSAGE: UNKNOWN, STRENGTH: 1MG/ML. 4TH SERIES WAS GIVEN ON 02AUG2020
     Dates: start: 20200525
  2. ETOPOSIDE [Suspect]
     Active Substance: ETOPOSIDE
     Indication: Metastatic choriocarcinoma
     Dosage: DOSAGE: UNKNOWN, STRENGTH: UNKNOWN. 4TH SERIES WAS GIVEN ON 02AUG2020
     Dates: start: 20200525

REACTIONS (2)
  - Pancytopenia [Fatal]
  - Multiple organ dysfunction syndrome [Fatal]

NARRATIVE: CASE EVENT DATE: 20200101
